FAERS Safety Report 4693576-0 (Version None)
Quarter: 2005Q2

REPORT INFORMATION
  Report Type: 
  Country: None (occurrence: None)
  Receive Date: 20050617
  Receipt Date: 20050323
  Transmission Date: 20051028
  Serious: Yes (Other)
  Sender: FDA-Public Use
  Company Number: US-ROCHE-404597

PATIENT
  Sex: Male

DRUGS (2)
  1. ACCUTANE [Suspect]
     Dates: start: 19950929, end: 19960318
  2. ORAL CONTRACEPTIVE PILL [Concomitant]
     Indication: CONTRACEPTION

REACTIONS (6)
  - DRUG EXPOSURE DURING PREGNANCY [None]
  - LIVE BIRTH [None]
  - NEONATAL DISORDER [None]
  - PNEUMONIA [None]
  - PREGNANCY [None]
  - SEASONAL ALLERGY [None]
